FAERS Safety Report 9605111 (Version 5)
Quarter: 2013Q4

REPORT INFORMATION
  Report Type: Report from Study
  Country: JP (occurrence: JP)
  Receive Date: 20131008
  Receipt Date: 20131226
  Transmission Date: 20140711
  Serious: Yes (Hospitalization)
  Sender: FDA-Public Use
  Company Number: JP-PFIZER INC-2013282765

PATIENT
  Age: 74 Year
  Sex: Female
  Weight: 49.1 kg

DRUGS (23)
  1. REVATIO [Suspect]
     Indication: PULMONARY ARTERIAL HYPERTENSION
     Dosage: 20 MG, 3X/DAY
     Route: 048
     Dates: start: 20130131, end: 20130218
  2. NESP [Concomitant]
     Indication: NEPHROGENIC ANAEMIA
     Dosage: 0.6 ML, 1X/DAY
     Route: 058
     Dates: start: 20130204, end: 20130211
  3. MERCAZOLE [Concomitant]
     Indication: HYPERTHYROIDISM
     Dosage: 5 MG, 1X/DAY
     Route: 048
  4. ALLOPURINOL [Concomitant]
     Indication: HYPERURICAEMIA
     Dosage: 100 MG, 1X/DAY
     Route: 048
  5. REBAMIPIDE [Concomitant]
     Indication: PROPHYLAXIS
     Dosage: 100 MG, 3X/DAY
     Route: 048
     Dates: start: 20120422
  6. ADETPHOS [Concomitant]
     Indication: DIZZINESS
     Dosage: 100 MG, 3X/DAY
     Route: 048
     Dates: start: 20120417
  7. MAGNESIUM OXIDE [Concomitant]
     Indication: CONSTIPATION
     Dosage: 500 MG, 3X/DAY
     Route: 048
  8. ALLEGRA [Concomitant]
     Indication: PRURITUS
     Dosage: 60 MG, 2X/DAY
     Route: 048
     Dates: start: 20120524
  9. FERROMIA [Concomitant]
     Indication: ANAEMIA
     Dosage: 50 MG, 2X/DAY
     Route: 048
     Dates: start: 20130111
  10. FUROSEMIDE [Concomitant]
     Indication: PULMONARY ARTERIAL HYPERTENSION
     Dosage: 20 MG, 1X/DAY
     Route: 048
  11. FUROSEMIDE [Concomitant]
     Indication: CARDIAC FAILURE
  12. PARIET [Concomitant]
     Indication: PROPHYLAXIS
     Dosage: 10 MG, 2X/DAY
     Route: 048
     Dates: start: 20130112
  13. LOXOPROFEN [Concomitant]
     Indication: BACK PAIN
     Dosage: 60 MG, 3X/DAY
     Route: 048
  14. WARFARIN [Concomitant]
     Indication: ATRIAL FIBRILLATION
     Dosage: 2.5 MG, 1X/DAY
     Route: 048
  15. HIRUDOID [Concomitant]
     Indication: ASTEATOSIS
     Dosage: UNK
     Route: 003
     Dates: start: 20130126
  16. ARGAMATE [Concomitant]
     Indication: HYPERKALAEMIA
     Dosage: 25 G, 3X/DAY
     Route: 048
     Dates: start: 20130128, end: 20130201
  17. BASEN OD [Concomitant]
     Indication: DIABETES MELLITUS
     Dosage: 0.3 G, 3X/DAY
     Route: 048
     Dates: start: 20130129
  18. AZUNOL [Concomitant]
     Indication: UPPER RESPIRATORY TRACT INFECTION
     Dosage: UNK
     Route: 061
     Dates: start: 20130201, end: 20130205
  19. BROCIN [Concomitant]
     Indication: UPPER RESPIRATORY TRACT INFECTION
     Dosage: UNK
     Route: 048
     Dates: start: 20130201, end: 20130205
  20. SENEGA SYRUP [Concomitant]
     Indication: UPPER RESPIRATORY TRACT INFECTION
     Dosage: UNK
     Route: 048
     Dates: start: 20130201, end: 20130205
  21. PERIACTIN [Concomitant]
     Indication: UPPER RESPIRATORY TRACT INFECTION
     Dosage: UNK
     Route: 048
     Dates: start: 20130201, end: 20130205
  22. APRICOT KERNEL WATER [Concomitant]
     Indication: UPPER RESPIRATORY TRACT INFECTION
     Dosage: UNK
     Route: 048
     Dates: start: 20130201, end: 20130205
  23. PL GRAN. [Concomitant]
     Indication: UPPER RESPIRATORY TRACT INFECTION
     Dosage: 1 G, 4X/DAY
     Route: 048
     Dates: start: 20130202, end: 20130205

REACTIONS (1)
  - Right ventricular failure [Recovering/Resolving]
